FAERS Safety Report 12816934 (Version 2)
Quarter: 2016Q4

REPORT INFORMATION
  Report Type: Report from Study
  Country: MX (occurrence: MX)
  Receive Date: 20161006
  Receipt Date: 20161012
  Transmission Date: 20170207
  Serious: No
  Sender: FDA-Public Use
  Company Number: MX-UCBSA-2016038291

PATIENT
  Sex: Female
  Weight: 51 kg

DRUGS (4)
  1. LEVETIRACETAM. [Suspect]
     Active Substance: LEVETIRACETAM
     Indication: ASTROCYTOMA, LOW GRADE
     Dosage: 500 MG, 2X/DAY (BID)
     Route: 048
     Dates: start: 2011, end: 2015
  2. LAMOTRIGINE. [Concomitant]
     Active Substance: LAMOTRIGINE
     Indication: SEIZURE
     Dosage: 1 G, 2X/DAY (BID)
     Dates: start: 2011
  3. LEVETIRACETAM. [Suspect]
     Active Substance: LEVETIRACETAM
     Dosage: 1 G, 2X/DAY (BID)
     Route: 048
     Dates: start: 2015
  4. LEVETIRACETAM. [Suspect]
     Active Substance: LEVETIRACETAM
     Indication: ASTROCYTOMA, LOW GRADE
     Dosage: 1.5 DF, 2X/DAY (BID)
     Dates: start: 2015, end: 2015

REACTIONS (2)
  - Intentional product misuse [Unknown]
  - Seizure [Recovered/Resolved]

NARRATIVE: CASE EVENT DATE: 2015
